FAERS Safety Report 8016399-3 (Version None)
Quarter: 2011Q4

REPORT INFORMATION
  Report Type: 
  Country: None (occurrence: None)
  Receive Date: 20111230
  Receipt Date: 20111221
  Transmission Date: 20120403
  Serious: Yes (Hospitalization)
  Sender: FDA-Public Use
  Company Number: IE-ELI_LILLY_AND_COMPANY-IE201112006220

PATIENT
  Age: 81 Year
  Sex: Male

DRUGS (7)
  1. ZYPREXA [Suspect]
     Dosage: 30 MG, QD
     Route: 048
     Dates: start: 20111011, end: 20111016
  2. PRAVASTATIN [Concomitant]
     Indication: HYPERCHOLESTEROLAEMIA
     Dosage: 40 MG, UNK
  3. ASPIRIN [Concomitant]
     Dosage: 75 MG, UNK
  4. ALFUZOSIN HCL [Concomitant]
     Dosage: 10 MG, UNK
  5. ACETAMINOPHEN [Concomitant]
     Indication: PAIN
     Dosage: 4 MG, UNK
  6. AMLODIPINE [Concomitant]
     Indication: HYPERTENSION
  7. PERSANTIN [Concomitant]
     Dosage: 400 MG, UNK
     Dates: start: 20111004

REACTIONS (8)
  - HALLUCINATION [None]
  - DYSPHAGIA [None]
  - OVERDOSE [None]
  - SEDATION [None]
  - DELIRIUM [None]
  - DISORIENTATION [None]
  - DRUG PRESCRIBING ERROR [None]
  - DYSARTHRIA [None]
